FAERS Safety Report 18142293 (Version 3)
Quarter: 2020Q3

REPORT INFORMATION
  Report Type: Spontaneous
  Country: CN (occurrence: CN)
  Receive Date: 20200812
  Receipt Date: 20200820
  Transmission Date: 20201103
  Serious: Yes (Death)
  Sender: FDA-Public Use
  Company Number: CN-ASTRAZENECA-2020SF01734

PATIENT
  Age: 80 Year
  Sex: Male
  Weight: 70 kg

DRUGS (2)
  1. IMFINZI [Suspect]
     Active Substance: DURVALUMAB
     Indication: SMALL CELL LUNG CANCER
     Dosage: DOSAGE: MIGHT BE 500ML, SPECIFIC DOSAGE UNKNOWN
     Route: 042
     Dates: start: 20200725, end: 20200725
  2. CHEMOTHERAPY [Concomitant]
     Active Substance: UNSPECIFIED INGREDIENT
     Dosage: THE CHEMOTHERAPEUTIC DRUGS WERE TRANSFUSED IN THE DAYTIME
     Route: 065

REACTIONS (2)
  - Immune-mediated pneumonitis [Fatal]
  - Rash [Unknown]

NARRATIVE: CASE EVENT DATE: 20200725
